FAERS Safety Report 9059340 (Version 1)
Quarter: 2013Q1

REPORT INFORMATION
  Report Type: Spontaneous
  Country: DK (occurrence: DK)
  Receive Date: 20130211
  Receipt Date: 20130211
  Transmission Date: 20140127
  Serious: Yes (Hospitalization)
  Sender: FDA-Public Use
  Company Number: DK-ASTRAZENECA-2013SE08947

PATIENT
  Sex: Male

DRUGS (1)
  1. SYNAGIS [Suspect]
     Indication: PARKINSON^S DISEASE
     Route: 030
     Dates: start: 200909

REACTIONS (1)
  - Pneumothorax [Unknown]
